FAERS Safety Report 20461349 (Version 1)
Quarter: 2022Q1

REPORT INFORMATION
  Report Type: Spontaneous
  Country: CN (occurrence: CN)
  Receive Date: 20220211
  Receipt Date: 20220211
  Transmission Date: 20220423
  Serious: Yes (Hospitalization)
  Sender: FDA-Public Use
  Company Number: CN-GLAXOSMITHKLINE-CN2022APC023513

PATIENT
  Age: 17 Year
  Sex: Female

DRUGS (1)
  1. LAMICTAL [Suspect]
     Active Substance: LAMOTRIGINE
     Indication: Insomnia
     Dosage: 50 MG, BID
     Route: 048
     Dates: start: 20220121, end: 20220122

REACTIONS (7)
  - Cheilitis [Recovering/Resolving]
  - Pruritus [Recovering/Resolving]
  - Rash [Recovering/Resolving]
  - Drug eruption [Recovering/Resolving]
  - Rash maculo-papular [Recovering/Resolving]
  - Mucosal erosion [Recovering/Resolving]
  - Effusion [Recovering/Resolving]

NARRATIVE: CASE EVENT DATE: 20220121
